FAERS Safety Report 6218065-3 (Version None)
Quarter: 2009Q2

REPORT INFORMATION
  Report Type: 
  Country: None (occurrence: None)
  Receive Date: 20090608
  Receipt Date: 20090601
  Transmission Date: 20091009
  Serious: Yes (Other)
  Sender: FDA-Public Use
  Company Number: US-ASTRAZENECA-2009UW13927

PATIENT
  Age: 53 Year
  Sex: Female
  Weight: 65.8 kg

DRUGS (6)
  1. FASLODEX [Suspect]
     Indication: BREAST CANCER
     Route: 030
     Dates: start: 20081001
  2. TAMOXIFEN CITRATE [Suspect]
     Indication: BREAST CANCER
     Route: 048
     Dates: start: 20041001, end: 20081001
  3. 3 DIFFERENT INSULIN THERAPIES [Concomitant]
  4. BENICAR [Concomitant]
  5. GENERIC MIACALCIN (FORTECAL) [Concomitant]
  6. OTC VITAMINS [Concomitant]

REACTIONS (4)
  - DIABETES MELLITUS INADEQUATE CONTROL [None]
  - FATIGUE [None]
  - HYSTERECTOMY [None]
  - NAUSEA [None]
